FAERS Safety Report 6095505-4 (Version None)
Quarter: 2009Q1

REPORT INFORMATION
  Report Type: 
  Country: None (occurrence: None)
  Receive Date: 20090227
  Receipt Date: 20080509
  Transmission Date: 20090719
  Serious: Yes (Hospitalization)
  Sender: FDA-Public Use
  Company Number: A0722930A

PATIENT
  Age: 78 Year
  Sex: Female
  Weight: 45.5 kg

DRUGS (8)
  1. FLU VACCINE [Suspect]
     Indication: PROPHYLAXIS
     Route: 065
     Dates: start: 20061101, end: 20061101
  2. LAMICTAL [Suspect]
     Indication: EPILEPSY
     Dosage: 75MG VARIABLE DOSE
     Route: 048
     Dates: start: 20061101
  3. LISINOPRIL [Concomitant]
  4. AMLODIPINE [Concomitant]
  5. SIMVASTATIN [Concomitant]
  6. HYDROCHLOROTHIAZIDE [Concomitant]
  7. VITAMINS [Concomitant]
  8. ASPIRIN [Concomitant]

REACTIONS (3)
  - AMNESIA [None]
  - CONVULSION [None]
  - DIZZINESS [None]
